FAERS Safety Report 7111698-1 (Version None)
Quarter: 2010Q4

REPORT INFORMATION
  Report Type: 
  Country: None (occurrence: None)
  Receive Date: 20101118
  Receipt Date: 20101109
  Transmission Date: 20110411
  Serious: Yes (Hospitalization)
  Sender: FDA-Public Use
  Company Number: JP-ABBOTT-10P-087-0684431-00

PATIENT
  Age: 69 Year
  Sex: Male

DRUGS (4)
  1. SEVOFLURANE [Suspect]
     Indication: MAINTENANCE OF ANAESTHESIA
     Dosage: MAINTENANCE: 1.0%
     Route: 055
     Dates: start: 20100615, end: 20100615
  2. FENTANYL CITRATE [Suspect]
     Indication: ANAESTHESIA
     Route: 042
     Dates: start: 20100615, end: 20100615
  3. PROPOFOL [Suspect]
     Indication: INDUCTION OF ANAESTHESIA
     Dosage: INDUCTION: 3 MICROGRAM/MILLILITER (TCI)
     Route: 042
     Dates: start: 20100615, end: 20100615
  4. PROPOFOL [Suspect]
     Indication: MAINTENANCE OF ANAESTHESIA
     Dosage: MAINTENANCE: 1.0-1.5 MCG/ML (TCI)
     Route: 042
     Dates: start: 20100615, end: 20100615

REACTIONS (1)
  - DELAYED RECOVERY FROM ANAESTHESIA [None]
